FAERS Safety Report 7407140-3 (Version None)
Quarter: 2011Q2

REPORT INFORMATION
  Report Type: 
  Country: None (occurrence: None)
  Receive Date: 20110411
  Receipt Date: 20110316
  Transmission Date: 20111010
  Serious: No
  Sender: FDA-Public Use
  Company Number: US-B.I. PHARMACEUTICALS,INC./RIDGEFIELD-2011-BP-08505BP

PATIENT
  Sex: Male

DRUGS (6)
  1. LISINOPRIL [Concomitant]
     Indication: HYPERTENSION
     Dosage: 40 MG
     Route: 048
  2. SENIOR MULITVITAMINS [Concomitant]
     Indication: SUPPLEMENTATION THERAPY
     Dosage: ONE TABLET
     Route: 048
  3. PRADAXA [Suspect]
     Indication: ATRIAL FIBRILLATION
     Dosage: 300 MG
     Route: 048
     Dates: start: 20110201
  4. FUROSEMIDE [Concomitant]
     Indication: DIURETIC THERAPY
     Dosage: 80 MG
     Route: 048
  5. CARVEDILOL [Concomitant]
     Dosage: 50 MG
     Route: 048
  6. VITAMIN D [Concomitant]
     Indication: HYPERTHYROIDISM
     Dosage: 2000 RT
     Route: 048

REACTIONS (3)
  - RECTAL HAEMORRHAGE [None]
  - VISUAL ACUITY REDUCED [None]
  - VISION BLURRED [None]
